FAERS Safety Report 5939922-9 (Version None)
Quarter: 2008Q4

REPORT INFORMATION
  Report Type: 
  Country: None (occurrence: None)
  Receive Date: 20081030
  Receipt Date: 20081030
  Transmission Date: 20090506
  Serious: Yes (Other)
  Sender: FDA-Public Use
  Company Number: None

PATIENT
  Sex: Female
  Weight: 48.0813 kg

DRUGS (1)
  1. DIGOXIN [Suspect]
     Indication: MYOCARDIAL INFARCTION
     Dosage: 1 TABLET DAILY ORAL
     Route: 048
     Dates: start: 20080426, end: 20080515

REACTIONS (5)
  - DISTURBANCE IN ATTENTION [None]
  - DIZZINESS [None]
  - HYPERHIDROSIS [None]
  - NAUSEA [None]
  - PRODUCT QUALITY ISSUE [None]
